FAERS Safety Report 15574580 (Version 1)
Quarter: 2018Q4

REPORT INFORMATION
  Report Type: Spontaneous
  Country: US (occurrence: US)
  Receive Date: 20181101
  Receipt Date: 20181101
  Transmission Date: 20190205
  Serious: No
  Sender: FDA-Public Use
  Company Number: US-LUPIN PHARMACEUTICALS INC.-2018-02398

PATIENT
  Sex: Female

DRUGS (4)
  1. LISINOPRIL TABLETS [Suspect]
     Active Substance: LISINOPRIL
     Dosage: 10 MG, UNK (NEW TABLET)
     Route: 065
  2. LISINOPRIL TABLETS [Suspect]
     Active Substance: LISINOPRIL
     Dosage: 20 MG, UNK
     Route: 065
  3. LISINOPRIL TABLETS [Suspect]
     Active Substance: LISINOPRIL
     Dosage: UNK, (OLD TABLET)
     Route: 065
  4. LISINOPRIL TABLETS [Suspect]
     Active Substance: LISINOPRIL
     Indication: BLOOD PRESSURE ABNORMAL
     Dosage: 10 MG, UNK (OLD TABLET)
     Route: 065

REACTIONS (1)
  - Drug ineffective [Unknown]
